FAERS Safety Report 23804187 (Version 1)
Quarter: 2024Q2

REPORT INFORMATION
  Report Type: Report from Study
  Country: JP (occurrence: JP)
  Receive Date: 20240501
  Receipt Date: 20240501
  Transmission Date: 20240715
  Serious: Yes (Other)
  Sender: FDA-Public Use
  Company Number: JP-PFIZER INC-PV202400055775

PATIENT
  Age: 54 Year
  Sex: Male

DRUGS (2)
  1. CABERGOLINE [Suspect]
     Active Substance: CABERGOLINE
     Indication: Prolactin-producing pituitary tumour
     Dosage: UNK
  2. CABERGOLINE [Suspect]
     Active Substance: CABERGOLINE
     Dosage: 2 MG, WEEKLY, A DOSE

REACTIONS (2)
  - Drug resistance [Unknown]
  - Treatment noncompliance [Unknown]
